FAERS Safety Report 14790600 (Version 1)
Quarter: 2018Q2

REPORT INFORMATION
  Report Type: Spontaneous
  Country: US (occurrence: US)
  Receive Date: 20180423
  Receipt Date: 20180423
  Transmission Date: 20180711
  Serious: No
  Sender: FDA-Public Use
  Company Number: US-ASTRAZENECA-2018SE47549

PATIENT
  Sex: Female

DRUGS (2)
  1. QUETIAPINE FUMARATE. [Suspect]
     Active Substance: QUETIAPINE FUMARATE
     Dosage: QUETIAPINE FUMARATE XR
     Route: 048
  2. QUETIAPINE FUMARATE. [Suspect]
     Active Substance: QUETIAPINE FUMARATE
     Dosage: AT NIGHT
     Route: 048

REACTIONS (5)
  - Arthralgia [Unknown]
  - Fatigue [Unknown]
  - Parkinsonism [Unknown]
  - Feeling drunk [Unknown]
  - Insomnia [Unknown]
